FAERS Safety Report 13009017 (Version 1)
Quarter: 2016Q4

REPORT INFORMATION
  Report Type: Spontaneous
  Country: GB (occurrence: GB)
  Receive Date: 20161208
  Receipt Date: 20161208
  Transmission Date: 20170207
  Serious: Yes (Disabling, Other)
  Sender: FDA-Public Use
  Company Number: GB-009507513-1612GBR001048

PATIENT
  Sex: Female

DRUGS (1)
  1. ETONOGESTREL IMPLANT- UNKNOWN [Suspect]
     Active Substance: ETONOGESTREL
     Dosage: UNK
     Route: 059

REACTIONS (5)
  - Pain [Recovering/Resolving]
  - Loss of consciousness [Recovering/Resolving]
  - Hypermobility syndrome [Recovering/Resolving]
  - Quality of life decreased [Recovering/Resolving]
  - Menorrhagia [Recovering/Resolving]
